FAERS Safety Report 9056866 (Version 1)
Quarter: 2013Q1

REPORT INFORMATION
  Report Type: Report from Study
  Country: JP (occurrence: JP)
  Receive Date: 20130201
  Receipt Date: 20130201
  Transmission Date: 20140127
  Serious: Yes (Other)
  Sender: FDA-Public Use
  Company Number: JP-GLAXOSMITHKLINE-B0860781A

PATIENT
  Age: 78 None
  Sex: Female
  Weight: 46 kg

DRUGS (6)
  1. TYKERB [Suspect]
     Indication: BREAST CANCER
     Route: 048
     Dates: start: 20110719, end: 20120305
  2. XELODA [Suspect]
     Route: 048
     Dates: start: 20110719, end: 20111017
  3. FELBINAC [Concomitant]
     Indication: BONE PAIN
     Route: 061
     Dates: start: 20110719, end: 20110805
  4. LOXONIN [Concomitant]
     Indication: BONE PAIN
     Route: 048
     Dates: start: 20110719
  5. PYDOXAL [Concomitant]
     Indication: PROPHYLAXIS
     Route: 048
     Dates: start: 20110719, end: 20111213
  6. TRANSAMIN [Concomitant]
     Indication: GINGIVITIS
     Route: 048
     Dates: start: 20111213, end: 20111218

REACTIONS (3)
  - Dementia [Not Recovered/Not Resolved]
  - Palmar-plantar erythrodysaesthesia syndrome [Recovering/Resolving]
  - Diarrhoea [Recovered/Resolved]
